FAERS Safety Report 17405967 (Version 2)
Quarter: 2020Q1

REPORT INFORMATION
  Report Type: Report from Study
  Country: DK (occurrence: DK)
  Receive Date: 20200212
  Receipt Date: 20200314
  Transmission Date: 20200409
  Serious: Yes (Hospitalization, Other)
  Sender: FDA-Public Use
  Company Number: DK-AMGEN-DNKNI2019174643

PATIENT
  Age: 53 Year
  Sex: Female

DRUGS (5)
  1. ERENUMAB [Suspect]
     Active Substance: ERENUMAB
     Dosage: 140 MG (70 MG X2), EVERY 28 DAYS
     Route: 058
     Dates: start: 20191003, end: 20200221
  2. METOPROLOL [METOPROLOL TARTRATE] [Suspect]
     Active Substance: METOPROLOL TARTRATE
     Indication: MIGRAINE
     Dosage: 1 DOSAGE FORM
     Route: 065
     Dates: start: 2012
  3. KETAZON [KETOCONAZOLE] [Suspect]
     Active Substance: KETOCONAZOLE
     Indication: PRODUCT USED FOR UNKNOWN INDICATION
     Dosage: 1 DOSAGE FORM
     Route: 065
     Dates: end: 20191024
  4. CODATEN [Suspect]
     Active Substance: CODEINE PHOSPHATE\DICLOFENAC SODIUM
     Indication: MIGRAINE
     Dosage: 1 DOSAGE FORM
     Route: 065
     Dates: start: 2017
  5. ERENUMAB [Suspect]
     Active Substance: ERENUMAB
     Indication: MIGRAINE
     Dosage: 140 MG, EVERY 28 DAYS
     Route: 058
     Dates: start: 20190711

REACTIONS (6)
  - Abdominal pain upper [Recovered/Resolved]
  - Pain [Recovered/Resolved]
  - Constipation [Recovered/Resolved]
  - Frequent bowel movements [Recovered/Resolved]
  - Uterine haemorrhage [Recovered/Resolved]
  - Fatigue [Unknown]

NARRATIVE: CASE EVENT DATE: 20190713
